FAERS Safety Report 7609887-2 (Version None)
Quarter: 2011Q3

REPORT INFORMATION
  Report Type: 
  Country: None (occurrence: None)
  Receive Date: 20110714
  Receipt Date: 20110705
  Transmission Date: 20111222
  Serious: Yes (Hospitalization)
  Sender: FDA-Public Use
  Company Number: US-BAXTER-2011BH021921

PATIENT
  Sex: Female

DRUGS (1)
  1. NITROGLYCERIN IN DEXTROSE 5% [Suspect]
     Indication: BLOOD PRESSURE
     Route: 065
     Dates: start: 20110701

REACTIONS (3)
  - HEADACHE [None]
  - MOVEMENT DISORDER [None]
  - CONFUSIONAL STATE [None]
